FAERS Safety Report 9521168 (Version 1)
Quarter: 2013Q3

REPORT INFORMATION
  Report Type: Spontaneous
  Country: DK (occurrence: None)
  Receive Date: 20130911
  Receipt Date: 20130911
  Transmission Date: 20140515
  Serious: No
  Sender: FDA-Public Use
  Company Number: AEDNK201200460

PATIENT
  Age: 21 Year
  Sex: Male

DRUGS (1)
  1. IGIVNEX [Suspect]
     Indication: NARCOLEPSY
     Route: 042
     Dates: start: 20110214, end: 20110215

REACTIONS (2)
  - Headache [None]
  - CSF white blood cell count increased [None]
